FAERS Safety Report 9887771 (Version 1)
Quarter: 2014Q1

REPORT INFORMATION
  Report Type: Spontaneous
  Country: US (occurrence: None)
  Receive Date: 20140206
  Receipt Date: 20140206
  Transmission Date: 20141002
  Serious: Yes (Other)
  Sender: FDA-Public Use
  Company Number: 2167744

PATIENT
  Sex: Female

DRUGS (2)
  1. SODIUM CHLORIDE [Suspect]
     Indication: PRODUCT USED FOR UNKNOWN INDICATION
     Dosage: 11/22/2013 1430-UNKNOWN?10 ML/HR
     Route: 041
     Dates: start: 20131122
  2. INSULIN [Suspect]
     Indication: BLOOD GLUCOSE INCREASED
     Dosage: 11/22/2013 1430- 11/22/2013 1549
     Route: 041
     Dates: start: 20131122, end: 20131122

REACTIONS (1)
  - Incorrect drug administration rate [None]
